FAERS Safety Report 4779468-7 (Version None)
Quarter: 2005Q3

REPORT INFORMATION
  Report Type: 
  Country: None (occurrence: None)
  Receive Date: 20050923
  Receipt Date: 20040910
  Transmission Date: 20060218
  Serious: Yes (Hospitalization)
  Sender: FDA-Public Use
  Company Number: 04-09-1279

PATIENT
  Age: 55 Year
  Sex: Female
  Weight: 49.8957 kg

DRUGS (16)
  1. BACLOFEN [Suspect]
     Indication: COMPLEX REGIONAL PAIN SYNDROME
     Dosage: 10MG QID ORAL
     Route: 048
     Dates: start: 20040801
  2. BACLOFEN [Suspect]
     Indication: MUSCLE SPASMS
     Dosage: 10MG QID ORAL
     Route: 048
     Dates: start: 20040801
  3. FOSAMAX [Concomitant]
  4. VICODIN HP [Concomitant]
  5. CIPRO [Concomitant]
  6. ACIDOPHILUS [Concomitant]
  7. DESYREL [Concomitant]
  8. ZOMIG PRN [Concomitant]
  9. FEMHRT [Concomitant]
  10. KLONOPIN [Concomitant]
  11. TOPAMAX [Concomitant]
  12. COLACE [Concomitant]
  13. XALATAN [Concomitant]
  14. LIDODERM TRANSDERMAL [Concomitant]
  15. CATAPRESSAN TTS [Concomitant]
  16. REGLAN [Concomitant]

REACTIONS (7)
  - ABDOMINAL DISTENSION [None]
  - ABDOMINAL PAIN [None]
  - ANOREXIA [None]
  - ARTHRALGIA [None]
  - DYSURIA [None]
  - FLUID RETENTION [None]
  - WEIGHT INCREASED [None]
